FAERS Safety Report 5250367-X (Version None)
Quarter: 2007Q1

REPORT INFORMATION
  Report Type: 
  Country: None (occurrence: None)
  Receive Date: 20070228
  Receipt Date: 20060404
  Transmission Date: 20070707
  Serious: Yes (Hospitalization)
  Sender: FDA-Public Use
  Company Number: US-GLAXOSMITHKLINE-A0600312A

PATIENT
  Age: 72 Year
  Sex: Female

DRUGS (10)
  1. LAMICTAL [Suspect]
     Indication: BIPOLAR DISORDER
     Route: 048
     Dates: start: 20000101
  2. UNKNOWN MEDICATION [Concomitant]
  3. LEVOTHYROXINE SODIUM [Concomitant]
  4. ATENOLOL [Concomitant]
  5. HYDROXYZINE [Concomitant]
  6. PREVACID [Concomitant]
  7. ALEVE [Concomitant]
  8. VIOXX [Concomitant]
  9. PENICILLIN V POTASSIUM [Concomitant]
  10. VICODIN [Concomitant]

REACTIONS (2)
  - NAUSEA [None]
  - RASH [None]
